FAERS Safety Report 20547300 (Version 1)
Quarter: 2022Q1

REPORT INFORMATION
  Report Type: Spontaneous
  Country: JP (occurrence: JP)
  Receive Date: 20220303
  Receipt Date: 20220303
  Transmission Date: 20220424
  Serious: Yes (Hospitalization, Other)
  Sender: FDA-Public Use
  Company Number: JP-MTPC-MTPC2022-0005101

PATIENT
  Age: 41 Year
  Sex: Male

DRUGS (2)
  1. REMICADE [Suspect]
     Active Substance: INFLIXIMAB
     Indication: Crohn^s disease
     Route: 042
  2. AZATHIOPRINE [Suspect]
     Active Substance: AZATHIOPRINE
     Indication: Crohn^s disease
     Route: 065

REACTIONS (10)
  - Disseminated intravascular coagulation [Unknown]
  - Neurogenic bladder [Unknown]
  - Crohn^s disease [Unknown]
  - Pyelonephritis chronic [Unknown]
  - Septic shock [Recovering/Resolving]
  - Pneumonia [Recovering/Resolving]
  - Thrombophlebitis [Unknown]
  - Urinary tract infection [Recovering/Resolving]
  - Cystitis [Unknown]
  - Bacterial infection [Unknown]
